FAERS Safety Report 8185300-4 (Version None)
Quarter: 2012Q1

REPORT INFORMATION
  Report Type: 
  Country: None (occurrence: None)
  Receive Date: 20120305
  Receipt Date: 20120227
  Transmission Date: 20120608
  Serious: Yes (Other)
  Sender: FDA-Public Use
  Company Number: PHHY2012IT017022

PATIENT
  Sex: Male

DRUGS (4)
  1. GONADORELIN INJ [Concomitant]
  2. MOTILEX [Concomitant]
  3. IBANDRONATE SODIUM [Suspect]
     Indication: METASTASES TO BONE
     Dosage: 6 MG, QMO
     Route: 042
     Dates: start: 20060101, end: 20110701
  4. ZOMETA [Suspect]
     Indication: METASTASES TO BONE
     Dosage: 4 MG, QMO
     Route: 042
     Dates: start: 20060101, end: 20110701

REACTIONS (1)
  - OSTEONECROSIS OF JAW [None]
